FAERS Safety Report 10446636 (Version 1)
Quarter: 2014Q3

REPORT INFORMATION
  Report Type: Spontaneous
  Country: ID (occurrence: ID)
  Receive Date: 20140911
  Receipt Date: 20140911
  Transmission Date: 20150326
  Serious: Yes (Other)
  Sender: FDA-Public Use
  Company Number: ID-ROCHE-1460954

PATIENT

DRUGS (2)
  1. HERCEPTIN [Suspect]
     Active Substance: TRASTUZUMAB
     Indication: PRODUCT USED FOR UNKNOWN INDICATION
     Dosage: 16TH CYCLE
     Route: 042
  2. TAMOFEN [Concomitant]
     Active Substance: TAMOXIFEN CITRATE

REACTIONS (2)
  - Hypoalbuminaemia [Unknown]
  - Peripheral swelling [Unknown]
